FAERS Safety Report 6903412-7 (Version None)
Quarter: 2010Q3

REPORT INFORMATION
  Report Type: 
  Country: None (occurrence: None)
  Receive Date: 20100803
  Receipt Date: 20080930
  Transmission Date: 20110219
  Serious: No
  Sender: FDA-Public Use
  Company Number: US-PFIZER INC-2008082709

PATIENT
  Sex: Female
  Weight: 76.2 kg

DRUGS (7)
  1. LYRICA [Suspect]
     Indication: FIBROMYALGIA
     Dates: start: 20080929
  2. LISINOPRIL [Concomitant]
  3. LOVASTATIN [Concomitant]
  4. PREMARIN [Concomitant]
     Dates: end: 20080701
  5. ESTRADIOL [Concomitant]
     Dates: start: 20080701
  6. SYNTHROID [Concomitant]
  7. MOTRIN [Concomitant]

REACTIONS (4)
  - FATIGUE [None]
  - FEELING ABNORMAL [None]
  - MUSCLE TIGHTNESS [None]
  - PAIN [None]
